FAERS Safety Report 7572856-5 (Version None)
Quarter: 2011Q2

REPORT INFORMATION
  Report Type: 
  Country: None (occurrence: None)
  Receive Date: 20110627
  Receipt Date: 20110617
  Transmission Date: 20111010
  Serious: Yes (Death, Hospitalization)
  Sender: FDA-Public Use
  Company Number: FR-ELI_LILLY_AND_COMPANY-FR201106004924

PATIENT
  Sex: Female

DRUGS (7)
  1. COPEGUS [Concomitant]
     Indication: HEPATITIS C
     Dosage: 200 MG, QD
     Route: 048
     Dates: start: 20101111, end: 20110307
  2. TRUVADA [Concomitant]
     Indication: HIV INFECTION
     Dosage: UNK
     Dates: start: 20100502
  3. PEGASYS [Concomitant]
     Indication: HEPATITIS C
     Dosage: 25.714 UG, QD
     Route: 058
     Dates: start: 20101111, end: 20110303
  4. ZOPLICONE [Concomitant]
     Indication: PSYCHOTIC DISORDER
     Dosage: 7.5 MG, QD
     Route: 048
     Dates: start: 20101001, end: 20110312
  5. ISENTRESS [Concomitant]
     Indication: HIV INFECTION
     Dosage: 400 MG, UNK
     Route: 048
     Dates: start: 20100502
  6. ZYPREXA [Suspect]
     Indication: PSYCHOTIC DISORDER
     Dosage: 10 MG, QD
     Route: 048
     Dates: start: 20101001, end: 20110312
  7. CITALOPRAM HYDROBROMIDE [Concomitant]
     Indication: PSYCHOTIC DISORDER
     Dosage: 20 MG, UNK
     Route: 048
     Dates: start: 20101001, end: 20110312

REACTIONS (2)
  - CARDIAC FAILURE [None]
  - PULMONARY ARTERIAL HYPERTENSION [None]
